FAERS Safety Report 16729232 (Version 1)
Quarter: 2019Q3

REPORT INFORMATION
  Report Type: Spontaneous
  Country: DE (occurrence: DE)
  Receive Date: 20190822
  Receipt Date: 20190822
  Transmission Date: 20191005
  Serious: Yes (Hospitalization)
  Sender: FDA-Public Use
  Company Number: DE-PFIZER INC-2019358713

PATIENT
  Age: 63 Year
  Sex: Male

DRUGS (3)
  1. ACLIDINIUM BROMIDE/FORMOTEROL [Concomitant]
     Dosage: 1 DF, 2X/DAY (12|340 ?G 1-0-1-0)
  2. RAMIPRIL. [Concomitant]
     Active Substance: RAMIPRIL
     Dosage: 5 MG, 2X/DAY (1-0-1-0)
  3. IBUPROFEN. [Suspect]
     Active Substance: IBUPROFEN
     Dosage: 600 MG, 4X/DAY (1-1-1-1)

REACTIONS (3)
  - Epistaxis [Unknown]
  - Headache [Unknown]
  - Hypertensive emergency [Unknown]

NARRATIVE: CASE EVENT DATE: 20180312
